FAERS Safety Report 9253127 (Version 1)
Quarter: 2013Q2

REPORT INFORMATION
  Report Type: Spontaneous
  Country: US (occurrence: US)
  Receive Date: 20130424
  Receipt Date: 20130424
  Transmission Date: 20140414
  Serious: No
  Sender: FDA-Public Use
  Company Number: US-ASTRAZENECA-2013SE24147

PATIENT
  Age: 70 Year
  Sex: Female
  Weight: 86.2 kg

DRUGS (5)
  1. CRESTOR [Suspect]
     Indication: BLOOD CHOLESTEROL INCREASED
     Route: 048
     Dates: start: 2012
  2. TRANSODONE [Concomitant]
     Indication: SLEEP DISORDER
     Route: 048
  3. ZOLOFT [Concomitant]
     Indication: DEPRESSION
     Dosage: DAILY
     Route: 048
  4. BABY ASPIRIN [Concomitant]
     Dosage: DAILY
     Route: 048
  5. CALCIUM CHEWS [Concomitant]
     Indication: MEDICAL DIET
     Dosage: DAILY
     Route: 048

REACTIONS (9)
  - Malaise [Not Recovered/Not Resolved]
  - Alopecia [Not Recovered/Not Resolved]
  - Eye pain [Recovered/Resolved]
  - Contusion [Not Recovered/Not Resolved]
  - Nausea [Not Recovered/Not Resolved]
  - Asthenia [Not Recovered/Not Resolved]
  - Fatigue [Not Recovered/Not Resolved]
  - Dyspnoea [Unknown]
  - Toothache [Unknown]
